FAERS Safety Report 17574380 (Version 1)
Quarter: 2020Q1

REPORT INFORMATION
  Report Type: Spontaneous
  Country: US (occurrence: US)
  Receive Date: 20200324
  Receipt Date: 20200324
  Transmission Date: 20200409
  Serious: No
  Sender: FDA-Public Use
  Company Number: US-AUROBINDO-AUR-APL-2019-011652

PATIENT
  Age: 53 Year
  Sex: Male
  Weight: 136 kg

DRUGS (4)
  1. GABAPENTIN CAPSULES 300 MG [Suspect]
     Active Substance: GABAPENTIN
     Indication: NEUROPATHY PERIPHERAL
     Dosage: 300MG CAPSULE: 300MG IN THE MORNING AND 600MG AT NIGHT
     Route: 065
     Dates: start: 201807
  2. GABAPENTIN CAPSULES 300 MG [Suspect]
     Active Substance: GABAPENTIN
     Dosage: 300MG IN THE MORNING, 300MG AT NOON, 600MG AT NIGHT
     Route: 065
  3. GABAPENTIN CAPSULES 300 MG [Suspect]
     Active Substance: GABAPENTIN
     Dosage: 300MG IN THE MORNING, 300MG AT NOON, 600MG AT NIGHT AND 600 MG MORE
     Route: 065
  4. VRAYLAR [Concomitant]
     Active Substance: CARIPRAZINE
     Indication: BIPOLAR I DISORDER
     Dosage: 3MG CAPSULE ONCE AT NIGHT
     Route: 065

REACTIONS (3)
  - Drug ineffective [Unknown]
  - Extra dose administered [Unknown]
  - Urticaria [Unknown]

NARRATIVE: CASE EVENT DATE: 201807
